FAERS Safety Report 22942950 (Version 5)
Quarter: 2024Q3

REPORT INFORMATION
  Report Type: Spontaneous
  Country: CO (occurrence: CO)
  Receive Date: 20230914
  Receipt Date: 20240816
  Transmission Date: 20241017
  Serious: Yes (Hospitalization, Other)
  Sender: SANDOZ
  Company Number: CO-002147023-NVSC2022CO144701

PATIENT
  Age: 70 Year
  Sex: Female
  Weight: 74 kg

DRUGS (8)
  1. FULVESTRANT [Suspect]
     Active Substance: FULVESTRANT
     Indication: Breast cancer
     Dosage: UNK
     Route: 030
  2. KISQALI [Suspect]
     Active Substance: RIBOCICLIB
     Indication: Hormone receptor positive HER2 negative breast cancer
     Dosage: 200 MG, QD (1)
     Route: 048
     Dates: start: 20220616
  3. KISQALI [Suspect]
     Active Substance: RIBOCICLIB
     Dosage: 200 MG, QD (21 DAYS)
     Route: 048
  4. KISQALI [Suspect]
     Active Substance: RIBOCICLIB
     Dosage: 200 MG, QD
     Route: 048
  5. KISQALI [Suspect]
     Active Substance: RIBOCICLIB
     Dosage: 200 MG
     Route: 048
  6. KISQALI [Suspect]
     Active Substance: RIBOCICLIB
     Dosage: 400 MG, QD (2 TABLETS)
     Route: 048
     Dates: start: 20220724
  7. KISQALI [Suspect]
     Active Substance: RIBOCICLIB
     Indication: Breast cancer metastatic
     Dosage: 600 MG, QD
     Route: 048
     Dates: start: 20220616
  8. KISQALI [Suspect]
     Active Substance: RIBOCICLIB
     Dosage: UNK
     Route: 048
     Dates: end: 20221215

REACTIONS (32)
  - Body temperature decreased [Unknown]
  - Malaise [Unknown]
  - Chills [Unknown]
  - Asthenia [Unknown]
  - Metastases to liver [Recovered/Resolved]
  - Dyspepsia [Unknown]
  - Enzyme level decreased [Recovered/Resolved]
  - Flatulence [Unknown]
  - Drug intolerance [Unknown]
  - Liver disorder [Unknown]
  - Tremor [Unknown]
  - Decreased immune responsiveness [Unknown]
  - Blood pressure decreased [Unknown]
  - Depression [Unknown]
  - Neck pain [Unknown]
  - Abdominal discomfort [Unknown]
  - Mood altered [Unknown]
  - Memory impairment [Unknown]
  - Gastritis [Unknown]
  - Dry skin [Unknown]
  - Conversion disorder [Unknown]
  - Body height decreased [Unknown]
  - Hip deformity [Unknown]
  - Gait inability [Unknown]
  - Hypersensitivity [Unknown]
  - Hepatic enzyme increased [Unknown]
  - Headache [Unknown]
  - Nausea [Unknown]
  - Transaminases increased [Unknown]
  - Myalgia [Unknown]
  - Decreased appetite [Unknown]
  - Product dose omission in error [Unknown]

NARRATIVE: CASE EVENT DATE: 20240501
